FAERS Safety Report 22361415 (Version 1)
Quarter: 2023Q2

REPORT INFORMATION
  Report Type: Spontaneous
  Country: US (occurrence: US)
  Receive Date: 20230524
  Receipt Date: 20230524
  Transmission Date: 20230721
  Serious: Yes (Other)
  Sender: FDA-Public Use
  Company Number: US-UCBSA-2023025973

PATIENT
  Age: 29 Day

DRUGS (12)
  1. MIDAZOLAM [Suspect]
     Active Substance: MIDAZOLAM
     Indication: Seizure
     Dosage: 0.1 MILLIGRAM/KILOGRAM, HOURLY HOSPITAL DAY 1
  2. MIDAZOLAM [Suspect]
     Active Substance: MIDAZOLAM
     Dosage: 0.9 MILLIGRAM/KILOGRAM, HOURLY
  3. LEVETIRACETAM [Suspect]
     Active Substance: LEVETIRACETAM
     Indication: Seizure
     Dosage: 30 MILLIGRAM/KILOGRAM, 2X/DAY (BID)
     Route: 042
  4. LEVETIRACETAM [Suspect]
     Active Substance: LEVETIRACETAM
     Dosage: 30 MILLIGRAM/KILOGRAM, 2X/DAY (BID)
     Route: 048
  5. PHENOBARBITAL [Suspect]
     Active Substance: PHENOBARBITAL
     Indication: Seizure
     Dosage: 10 MILLIGRAM/KILOGRAM, 2X/DAY (BID)
     Route: 048
  6. TOPIRAMATE [Suspect]
     Active Substance: TOPIRAMATE
     Indication: Seizure
     Dosage: 4 MILLIGRAM/KILOGRAM, 2X/DAY (BID)
     Route: 048
  7. PENTOBARBITAL [Suspect]
     Active Substance: PENTOBARBITAL
     Indication: Seizure
     Dosage: 1 MILLIGRAM/KILOGRAM, HOURLY
  8. PENTOBARBITAL [Suspect]
     Active Substance: PENTOBARBITAL
     Dosage: 0.5 MILLIGRAM/KILOGRAM, HOURLY
  9. PENTOBARBITAL [Suspect]
     Active Substance: PENTOBARBITAL
     Dosage: 2 MILLIGRAM/KILOGRAM, HOURLY
  10. LORAZEPAM [Suspect]
     Active Substance: LORAZEPAM
     Indication: Seizure
     Dosage: 0.1 MILLIGRAM/KILOGRAM
  11. FOSPHENYTOIN [Suspect]
     Active Substance: FOSPHENYTOIN
     Indication: Seizure
     Dosage: 20 MILLIGRAM
  12. EPINEPHRINE [Concomitant]
     Active Substance: EPINEPHRINE
     Indication: Product used for unknown indication
     Dosage: UNK

REACTIONS (2)
  - Status epilepticus [Unknown]
  - Off label use [Unknown]
